FAERS Safety Report 15684261 (Version 3)
Quarter: 2019Q2

REPORT INFORMATION
  Report Type: Report from Study
  Country: JP (occurrence: JP)
  Receive Date: 20181204
  Receipt Date: 20190409
  Transmission Date: 20190711
  Serious: Yes (Death, Life-Threatening, Hospitalization)
  Sender: FDA-Public Use
  Company Number: JP-BEH-2018097315

PATIENT
  Age: 49 Year
  Sex: Female
  Weight: 62 kg

DRUGS (19)
  1. BERIPLEX P/N [Suspect]
     Active Substance: COAGULATION FACTOR IX HUMAN\COAGULATION FACTOR VII HUMAN\COAGULATION FACTOR X HUMAN\PROTEIN C\PROTEIN S HUMAN\PROTHROMBIN
     Indication: HAEMORRHAGE
     Dosage: UNK
     Route: 042
     Dates: start: 20180815
  2. HEPARIN [Suspect]
     Active Substance: HEPARIN SODIUM
     Indication: LUNG ASSIST DEVICE THERAPY
     Dosage: 10000 IU, QD
     Route: 065
     Dates: start: 20180814, end: 20180819
  3. PROPOFOL. [Concomitant]
     Active Substance: PROPOFOL
     Dosage: UNK
     Route: 065
     Dates: end: 20180829
  4. BERIPLEX P/N [Suspect]
     Active Substance: COAGULATION FACTOR IX HUMAN\COAGULATION FACTOR VII HUMAN\COAGULATION FACTOR X HUMAN\PROTEIN C\PROTEIN S HUMAN\PROTHROMBIN
     Indication: SURGERY
     Dosage: 2000 IU, TOT
     Route: 042
     Dates: start: 20180815
  5. NAFAMOSTAT MESILATE [Concomitant]
     Active Substance: NAFAMOSTAT MESYLATE
     Indication: ACUTE KIDNEY INJURY
     Dosage: 400 MG, QD
     Route: 065
     Dates: start: 20180819, end: 20180904
  6. BERIPLEX P/N [Suspect]
     Active Substance: COAGULATION FACTOR IX HUMAN\COAGULATION FACTOR VII HUMAN\COAGULATION FACTOR X HUMAN\PROTEIN C\PROTEIN S HUMAN\PROTHROMBIN
     Indication: HAEMORRHAGE
     Dosage: UNK
     Route: 042
     Dates: start: 20180815
  7. DOBUTAMINE                         /00493402/ [Concomitant]
     Active Substance: DOBUTAMINE\DOBUTAMINE HYDROCHLORIDE
     Dosage: UNK
     Route: 065
     Dates: start: 20180815, end: 20180904
  8. ADRENALINE                         /00003901/ [Concomitant]
     Active Substance: EPINEPHRINE
     Dosage: UNK
     Route: 065
     Dates: end: 20180814
  9. TRANEXAMIC ACID. [Concomitant]
     Active Substance: TRANEXAMIC ACID
     Dosage: UNK
     Route: 065
     Dates: end: 20180830
  10. FENTANYL                           /00174602/ [Concomitant]
     Active Substance: FENTANYL
     Dosage: UNK
     Route: 065
     Dates: end: 20180824
  11. NORADRENALIN                       /00127501/ [Concomitant]
     Active Substance: NOREPINEPHRINE\NOREPINEPHRINE BITARTRATE
     Dosage: UNK
     Route: 065
     Dates: end: 20180904
  12. BERIPLEX P/N [Suspect]
     Active Substance: COAGULATION FACTOR IX HUMAN\COAGULATION FACTOR VII HUMAN\COAGULATION FACTOR X HUMAN\PROTEIN C\PROTEIN S HUMAN\PROTHROMBIN
     Indication: DISSEMINATED INTRAVASCULAR COAGULATION
     Dosage: 2000 IU, TOT
     Route: 042
     Dates: start: 20180818
  13. HEPARIN [Suspect]
     Active Substance: HEPARIN SODIUM
     Indication: SURGERY
  14. NAFAMOSTAT MESILATE [Concomitant]
     Active Substance: NAFAMOSTAT MESYLATE
     Indication: SURGERY
  15. ANCARON [Concomitant]
     Active Substance: AMIODARONE HYDROCHLORIDE
     Dosage: UNK
     Route: 065
     Dates: end: 20180901
  16. ROCURONIUM                         /01245702/ [Concomitant]
     Active Substance: ROCURONIUM BROMIDE
     Dosage: UNK
     Route: 065
     Dates: end: 20180829
  17. BERIPLEX P/N [Suspect]
     Active Substance: COAGULATION FACTOR IX HUMAN\COAGULATION FACTOR VII HUMAN\COAGULATION FACTOR X HUMAN\PROTEIN C\PROTEIN S HUMAN\PROTHROMBIN
     Dosage: 2000 IU, TOT
     Route: 042
     Dates: start: 20180819
  18. PROTAMINE SULFATE. [Concomitant]
     Active Substance: PROTAMINE SULFATE
     Dosage: UNK
     Route: 065
     Dates: end: 20180819
  19. MIDAZOLAM [Concomitant]
     Active Substance: MIDAZOLAM HYDROCHLORIDE
     Dosage: UNK
     Route: 065
     Dates: end: 20180823

REACTIONS (2)
  - Intracardiac thrombus [Fatal]
  - Shock haemorrhagic [Recovered/Resolved]

NARRATIVE: CASE EVENT DATE: 20180815
